APPROVED DRUG PRODUCT: LACTULOSE
Active Ingredient: LACTULOSE
Strength: 20GM/PACKET
Dosage Form/Route: FOR SOLUTION;ORAL
Application: A074712 | Product #002 | TE Code: AA
Applicant: CUMBERLAND PHARMACEUTICALS INC
Approved: Dec 10, 1997 | RLD: No | RS: Yes | Type: RX